FAERS Safety Report 9652865 (Version 2)
Quarter: 2013Q4

REPORT INFORMATION
  Report Type: Spontaneous
  Country: CA (occurrence: CA)
  Receive Date: 20131029
  Receipt Date: 20131029
  Transmission Date: 20140711
  Serious: Yes (Other)
  Sender: FDA-Public Use
  Company Number: CA-ABBVIE-13X-028-1090464-00

PATIENT
  Sex: Female

DRUGS (2)
  1. SYNTHROID [Suspect]
     Indication: PRODUCT USED FOR UNKNOWN INDICATION
     Route: 048
     Dates: start: 2013
  2. SYNTHROID [Suspect]
     Dates: start: 2013, end: 2013

REACTIONS (6)
  - Depressed mood [Unknown]
  - Fatigue [Unknown]
  - Hyperhidrosis [Unknown]
  - Nervousness [Unknown]
  - Palpitations [Unknown]
  - Weight increased [Unknown]
